FAERS Safety Report 23513801 (Version 2)
Quarter: 2024Q2

REPORT INFORMATION
  Report Type: Report from Study
  Country: MX (occurrence: None)
  Receive Date: 20240212
  Receipt Date: 20240606
  Transmission Date: 20240716
  Serious: Yes (Other)
  Sender: FDA-Public Use
  Company Number: 2022A409760

PATIENT
  Age: 19657 Day
  Sex: Male
  Weight: 93 kg

DRUGS (1)
  1. TAGRISSO [Suspect]
     Active Substance: OSIMERTINIB
     Indication: Lung neoplasm malignant
     Route: 048
     Dates: start: 20211230

REACTIONS (14)
  - Aortic arteriosclerosis [Unknown]
  - Hernia [Unknown]
  - Parotid lipomatosis [Unknown]
  - Atelectasis [Unknown]
  - Inguinal hernia [Unknown]
  - Umbilical hernia [Unknown]
  - Hydrocele [Unknown]
  - Varicocele [Unknown]
  - Renal cyst [Unknown]
  - Prostatomegaly [Unknown]
  - Metabolic disorder [Unknown]
  - Inflammatory bowel disease [Unknown]
  - Illness [Unknown]
  - Product dose omission issue [Unknown]

NARRATIVE: CASE EVENT DATE: 20221212
